FAERS Safety Report 4496688-X (Version None)
Quarter: 2004Q4

REPORT INFORMATION
  Report Type: 
  Country: None (occurrence: None)
  Receive Date: 20041108
  Receipt Date: 20041108
  Transmission Date: 20050328
  Serious: Yes (Hospitalization)
  Sender: FDA-Public Use
  Company Number: None

PATIENT
  Sex: Male
  Weight: 92.9 kg

DRUGS (6)
  1. DOCETAXEL [Suspect]
     Indication: BLADDER CANCER
     Dosage: 75MG; D1,8,15;IV
     Route: 042
     Dates: start: 20040810
  2. CAPECITABINE [Suspect]
     Indication: BLADDER CANCER
     Dosage: 150MG; D5-18;PO
     Route: 048
     Dates: start: 20040915
  3. ZOLOFT [Concomitant]
  4. ZETIA [Concomitant]
  5. SYNTHROID [Concomitant]
  6. LEVAQUIN [Concomitant]

REACTIONS (3)
  - CELLULITIS [None]
  - CHEST PAIN [None]
  - PULMONARY EMBOLISM [None]
